FAERS Safety Report 5026546-3 (Version None)
Quarter: 2006Q2

REPORT INFORMATION
  Report Type: 
  Country: None (occurrence: None)
  Receive Date: 20060615
  Receipt Date: 20060124
  Transmission Date: 20061013
  Serious: Yes (Hospitalization, Other)
  Sender: FDA-Public Use
  Company Number: US-NOVOPROD-250283

PATIENT
  Age: 67 Year
  Sex: Male
  Weight: 99 kg

DRUGS (11)
  1. NOVOLIN 70/30 [Suspect]
     Indication: INSULIN-REQUIRING TYPE II DIABETES MELLITUS
     Dosage: 60 IU, QD
     Route: 058
     Dates: start: 20060120
  2. ASPIRIN                            /00002701/ [Concomitant]
     Indication: ILL-DEFINED DISORDER
  3. LOTENSIN [Concomitant]
     Indication: ILL-DEFINED DISORDER
     Dosage: 20 UNK, UNK
  4. LEVOXYL [Concomitant]
     Indication: ILL-DEFINED DISORDER
     Dosage: 150 UNK, UNK
  5. GLUCOTROL XL [Concomitant]
     Indication: ILL-DEFINED DISORDER
     Dosage: 5 UNK, UNK
  6. TOPROL-XL [Concomitant]
     Indication: ILL-DEFINED DISORDER
     Dosage: 25 UNK, UNK
  7. SINGULAIR                          /01362602/ [Concomitant]
     Indication: ILL-DEFINED DISORDER
     Dosage: 10 UNK, UNK
  8. PREVACID [Concomitant]
     Indication: ILL-DEFINED DISORDER
     Dosage: 30 UNK, UNK
  9. HYDROCHLOROTHIAZIDE [Concomitant]
     Indication: ILL-DEFINED DISORDER
     Dosage: 12.5 UNK, UNK
  10. PRAVACHOL [Concomitant]
     Indication: ILL-DEFINED DISORDER
     Dosage: 40 UNK, UNK
  11. ALBUTEROL                          /00139502/ [Concomitant]
     Indication: ILL-DEFINED DISORDER

REACTIONS (2)
  - INJECTION SITE ABSCESS [None]
  - INJECTION SITE IRRITATION [None]
